FAERS Safety Report 7437865-5 (Version None)
Quarter: 2011Q2

REPORT INFORMATION
  Report Type: 
  Country: None (occurrence: None)
  Receive Date: 20110426
  Receipt Date: 20110420
  Transmission Date: 20111010
  Serious: Yes (Other)
  Sender: FDA-Public Use
  Company Number: A0923704A

PATIENT
  Age: 34 Year
  Sex: Female

DRUGS (1)
  1. COMBIVIR [Suspect]
     Indication: PROPHYLAXIS
     Route: 048
     Dates: start: 20110417

REACTIONS (8)
  - ABDOMINAL PAIN [None]
  - MUSCLE SPASMS [None]
  - VOMITING [None]
  - PYREXIA [None]
  - DIARRHOEA [None]
  - DYSPNOEA [None]
  - PANCREATITIS [None]
  - NAUSEA [None]
